FAERS Safety Report 10945249 (Version 1)
Quarter: 2015Q1

REPORT INFORMATION
  Report Type: Spontaneous
  Country: US (occurrence: None)
  Receive Date: 20150129
  Receipt Date: 20150129
  Transmission Date: 20150721
  Serious: No
  Sender: FDA-Public Use
  Company Number: A-US2014-104444

PATIENT
  Age: 73 Year
  Sex: Female

DRUGS (16)
  1. CYMBALTA [Concomitant]
     Active Substance: DULOXETINE HYDROCHLORIDE
  2. SPIRIVA (TIOTROPIUM BROMIDE) [Concomitant]
  3. BUPROPION (BUPROPION HYDROCHLORIDE) [Concomitant]
  4. CEFPROZIL (CEFPROZIL MONOHYDRATE) [Concomitant]
  5. HYDROCODONE BITARTRATE AND ACETAMINOPHEN [Concomitant]
     Active Substance: ACETAMINOPHEN\HYDROCODONE BITARTRATE
  6. PRAVASTATIN [Concomitant]
     Active Substance: PRAVASTATIN\PRAVASTATIN SODIUM
  7. DEXILANT [Concomitant]
     Active Substance: DEXLANSOPRAZOLE
  8. OPSUMIT [Suspect]
     Active Substance: MACITENTAN
     Indication: COR PULMONALE CHRONIC
     Route: 048
  9. RESTASIS (CICLOSPORIN) [Concomitant]
  10. TIAZAC (PIOGLITAZONE HYDROCHLORIDE) [Concomitant]
  11. TRAZODONE [Concomitant]
     Active Substance: TRAZODONE HYDROCHLORIDE
  12. SULFAMETHOXAZOLE W/TRIMETHOPRIM (SULFAMETHOXAZOLE, TRIMETHOPRIM) [Concomitant]
  13. FLUTICASONE [Concomitant]
     Active Substance: FLUTICASONE\FLUTICASONE PROPIONATE
  14. CEFDINIR (CEFDINIR)?. [Concomitant]
  15. PATADAY (OLOPATADINE HYDROCHLORIDE) [Concomitant]
  16. LEVOTHYROXINE (LEVOTHYROXINE SODIUM) [Concomitant]

REACTIONS (1)
  - Muscle spasms [None]
